FAERS Safety Report 7370311-9 (Version None)
Quarter: 2011Q1

REPORT INFORMATION
  Report Type: 
  Country: None (occurrence: None)
  Receive Date: 20110323
  Receipt Date: 20110314
  Transmission Date: 20110831
  Serious: Yes (Other)
  Sender: FDA-Public Use
  Company Number: US-SANOFI-AVENTIS-2011SA015916

PATIENT

DRUGS (1)
  1. PLAVIX [Suspect]
     Route: 065
     Dates: start: 20110201

REACTIONS (1)
  - INTESTINAL OBSTRUCTION [None]
